FAERS Safety Report 9348826 (Version 1)
Quarter: 2013Q2

REPORT INFORMATION
  Report Type: Spontaneous
  Country: US (occurrence: US)
  Receive Date: 20130614
  Receipt Date: 20130614
  Transmission Date: 20140414
  Serious: Yes (Other)
  Sender: FDA-Public Use
  Company Number: US-AMGEN-USASP2013041742

PATIENT
  Age: 89 Year
  Sex: Female

DRUGS (14)
  1. PROLIA [Suspect]
     Indication: OSTEOPOROSIS POSTMENOPAUSAL
  2. GLIPIZIDE [Concomitant]
  3. HYOSCYAMINE [Concomitant]
     Dosage: 375 MG, UNK
  4. LIPITOR [Concomitant]
     Dosage: 80 MG, UNK
  5. MICARDIS [Concomitant]
     Dosage: 80 MG, UNK
  6. NEXIUM                             /01479302/ [Concomitant]
     Dosage: 80 MG, UNK
  7. NORTRIPTYLINE [Concomitant]
     Dosage: 10 MG, UNK
  8. ZETIA [Concomitant]
     Dosage: 10 MG, UNK
  9. SINGULAIR [Concomitant]
     Dosage: 10 MG, UNK
  10. LEVOTHYROXINE [Concomitant]
     Dosage: 50 MUG, UNK
  11. ANASTROZOLE [Concomitant]
     Dosage: 1 MG, UNK
  12. HYOMAX [Concomitant]
  13. METOPROLOL [Concomitant]
     Dosage: 100 MG, UNK
  14. SPIRIVA [Concomitant]

REACTIONS (4)
  - Therapeutic procedure [Unknown]
  - Headache [Unknown]
  - Migraine [Unknown]
  - Retching [Unknown]
